FAERS Safety Report 8119606-1 (Version None)
Quarter: 2012Q1

REPORT INFORMATION
  Report Type: 
  Country: None (occurrence: None)
  Receive Date: 20120203
  Receipt Date: 20120118
  Transmission Date: 20120608
  Serious: Yes (Death)
  Sender: FDA-Public Use
  Company Number: JPI-P-009542

PATIENT
  Age: 49 Year
  Sex: Male

DRUGS (4)
  1. UNSPECIFIED SLEEP MEDICATION [Concomitant]
  2. UNSPECIFIED MEDICATIONS [Suspect]
     Indication: PRODUCT USED FOR UNKNOWN INDICATION
     Dosage: UNKNOWN
  3. XYREM [Suspect]
     Indication: POST-TRAUMATIC STRESS DISORDER
     Dosage: 4.5 GM (2.25 GM, 2 IN 1 D), ORAL, 9 GM (4.5 GM, 2 IN 1 D), ORAL
     Route: 048
     Dates: start: 20091015, end: 20100112
  4. XYREM [Suspect]
     Indication: POST-TRAUMATIC STRESS DISORDER
     Dosage: 4.5 GM (2.25 GM, 2 IN 1 D), ORAL, 9 GM (4.5 GM, 2 IN 1 D), ORAL
     Route: 048
     Dates: start: 20090501, end: 20091014

REACTIONS (4)
  - ACCIDENTAL EXPOSURE [None]
  - CARDIAC DEATH [None]
  - INCORRECT DOSE ADMINISTERED [None]
  - ALCOHOL USE [None]
